FAERS Safety Report 20076995 (Version 1)
Quarter: 2021Q4

REPORT INFORMATION
  Report Type: Spontaneous
  Country: FR (occurrence: FR)
  Receive Date: 20211116
  Receipt Date: 20211116
  Transmission Date: 20220303
  Serious: Yes (Hospitalization, Other)
  Sender: FDA-Public Use
  Company Number: FR-009507513-2111FRA003189

PATIENT
  Age: 80 Year
  Sex: Male

DRUGS (2)
  1. PEMBROLIZUMAB [Suspect]
     Active Substance: PEMBROLIZUMAB
     Indication: Bladder cancer
  2. PEMBROLIZUMAB [Suspect]
     Active Substance: PEMBROLIZUMAB
     Indication: Metastatic lymphoma

REACTIONS (3)
  - Immune-mediated myocarditis [Recovered/Resolved]
  - Blood creatine phosphokinase increased [Recovered/Resolved]
  - Product use in unapproved indication [Unknown]
